FAERS Safety Report 23566213 (Version 2)
Quarter: 2024Q2

REPORT INFORMATION
  Report Type: Report from Study
  Country: US (occurrence: US)
  Receive Date: 20240226
  Receipt Date: 20240408
  Transmission Date: 20240716
  Serious: Yes (Hospitalization)
  Sender: FDA-Public Use
  Company Number: US-ARGENX-2023-ARGX-US004544

PATIENT

DRUGS (1)
  1. VYVGART [Suspect]
     Active Substance: EFGARTIGIMOD ALFA-FCAB
     Indication: Myasthenia gravis
     Dosage: 4TH CYCLE
     Route: 042
     Dates: start: 20231123

REACTIONS (5)
  - Dysarthria [Unknown]
  - Dysphagia [Unknown]
  - Myasthenia gravis [Unknown]
  - Pneumonia [Unknown]
  - Orthopnoea [Unknown]
